FAERS Safety Report 9117939 (Version 1)
Quarter: 2013Q1

REPORT INFORMATION
  Report Type: Spontaneous
  Country: US (occurrence: US)
  Receive Date: 20130225
  Receipt Date: 20130225
  Transmission Date: 20140127
  Serious: Yes (Hospitalization)
  Sender: FDA-Public Use
  Company Number: CHPA2013US003214

PATIENT
  Age: 72 Year
  Sex: Male

DRUGS (4)
  1. PRIVATE LABEL [Suspect]
     Indication: SMOKING CESSATION THERAPY
     Dosage: 14 MG, UNK
     Route: 062
     Dates: start: 201301, end: 201302
  2. PRIVATE LABEL [Suspect]
     Dosage: 21 MG, UNK
     Route: 062
     Dates: start: 201301
  3. CVS [Suspect]
     Indication: SMOKING CESSATION THERAPY
     Dosage: 7 MG, UNK
     Route: 062
     Dates: start: 201301
  4. ROPINIROLE [Concomitant]
     Indication: MUSCLE SPASMS
     Dosage: UNK, UNK

REACTIONS (8)
  - Pneumonia [Recovering/Resolving]
  - Chills [Recovering/Resolving]
  - Asthenia [Recovering/Resolving]
  - Gait disturbance [Recovering/Resolving]
  - Dyspnoea [Recovering/Resolving]
  - Nightmare [Not Recovered/Not Resolved]
  - Nausea [Recovering/Resolving]
  - Inappropriate schedule of drug administration [Unknown]
